FAERS Safety Report 9638380 (Version 2)
Quarter: 2013Q4

REPORT INFORMATION
  Report Type: Spontaneous
  Country: DE (occurrence: DE)
  Receive Date: 20131022
  Receipt Date: 20131106
  Transmission Date: 20140711
  Serious: Yes (Other)
  Sender: FDA-Public Use
  Company Number: GXKR2013DE003327

PATIENT
  Sex: 0

DRUGS (1)
  1. IBU-LYSINHEXAL [Suspect]
     Dosage: 0.5 DF, ONCE/SINGLE
     Route: 048
     Dates: start: 20131016

REACTIONS (2)
  - Circulatory collapse [Recovered/Resolved]
  - Hypersensitivity [Recovered/Resolved]
